FAERS Safety Report 8947941 (Version 2)
Quarter: 2013Q1

REPORT INFORMATION
  Report Type: Spontaneous
  Country: GR (occurrence: None)
  Receive Date: 20121127
  Receipt Date: 20121203
  Transmission Date: 20140127
  Serious: Yes (Hospitalization, Other)
  Sender: FDA-Public Use
  Company Number: 2012-004074

PATIENT
  Age: 73 Year
  Sex: Female

DRUGS (5)
  1. ACTONEL [Suspect]
     Indication: OSTEOPOROSIS
     Route: 048
     Dates: start: 2006, end: 2011
  2. ALENDRONATE [Suspect]
     Indication: OSTEOPOROSIS
     Dates: start: 1999, end: 2006
  3. STRONTIUM [Suspect]
     Indication: OSTEOPOROSIS
     Dates: start: 2011
  4. VITAMIN D /00318501/ (COLECALCIFEROL) [Concomitant]
  5. CALCIUM (CALCIUM) [Concomitant]

REACTIONS (2)
  - Femur fracture [None]
  - Bone pain [None]
